FAERS Safety Report 22695215 (Version 3)
Quarter: 2024Q1

REPORT INFORMATION
  Report Type: Spontaneous
  Country: US (occurrence: US)
  Receive Date: 20230712
  Receipt Date: 20240104
  Transmission Date: 20240410
  Serious: Yes (Other)
  Sender: FDA-Public Use
  Company Number: US-BRISTOL-MYERS SQUIBB COMPANY-2023-097046

PATIENT
  Age: 85 Year
  Sex: Female
  Weight: 75.75 kg

DRUGS (2)
  1. REVLIMID [Suspect]
     Active Substance: LENALIDOMIDE
     Indication: Plasma cell myeloma
     Route: 048
  2. REVLIMID [Suspect]
     Active Substance: LENALIDOMIDE
     Dosage: ONCE DAILY
     Route: 048

REACTIONS (4)
  - Dehydration [Unknown]
  - Renal impairment [Unknown]
  - Tooth disorder [Unknown]
  - Blood disorder [Unknown]
